FAERS Safety Report 6929026-0 (Version None)
Quarter: 2010Q3

REPORT INFORMATION
  Report Type: 
  Country: None (occurrence: None)
  Receive Date: 20100817
  Receipt Date: 20100804
  Transmission Date: 20110219
  Serious: Yes (Death, Life-Threatening, Hospitalization, Disabling)
  Sender: FDA-Public Use
  Company Number: DE-ABBOTT-10P-062-0643653-00

PATIENT
  Age: 58 Year
  Sex: Female
  Weight: 58.1 kg

DRUGS (23)
  1. HUMIRA [Suspect]
     Indication: RHEUMATOID ARTHRITIS
     Dosage: PREFILLED PEN
     Route: 058
     Dates: start: 20051101, end: 20091201
  2. ARAVA [Suspect]
     Indication: RHEUMATOID ARTHRITIS
     Dates: start: 20050101, end: 20091201
  3. OLMESARTAN MEDOXOMIL [Concomitant]
     Indication: HYPERTENSION
  4. PREDNISONE TAB [Concomitant]
     Indication: PRODUCT USED FOR UNKNOWN INDICATION
     Dosage: OPD11/2-0-0
  5. AMPICILLIN AND SULBACTAM [Concomitant]
     Indication: PRODUCT USED FOR UNKNOWN INDICATION
  6. CIPRO [Concomitant]
     Indication: KLEBSIELLA INFECTION
     Dosage: FOR 5 DAYS
  7. CIPRO [Concomitant]
     Dates: end: 20091017
  8. TRAMAL [Concomitant]
     Indication: PRODUCT USED FOR UNKNOWN INDICATION
  9. PANTOZOL [Concomitant]
     Indication: PRODUCT USED FOR UNKNOWN INDICATION
  10. ASPIRIN [Concomitant]
     Indication: PRODUCT USED FOR UNKNOWN INDICATION
  11. ACTONEL [Concomitant]
     Indication: PRODUCT USED FOR UNKNOWN INDICATION
  12. DEKRISTOL [Concomitant]
     Indication: PRODUCT USED FOR UNKNOWN INDICATION
  13. METOPROLOL TARTRATE [Concomitant]
     Indication: PRODUCT USED FOR UNKNOWN INDICATION
     Dosage: BID 1-0-1/2
  14. AGGRENOX [Concomitant]
     Indication: PRODUCT USED FOR UNKNOWN INDICATION
     Dosage: BID 1-01
     Dates: start: 20090112
  15. RANITIC [Concomitant]
     Indication: PRODUCT USED FOR UNKNOWN INDICATION
     Dosage: BID 1-0-1
  16. LEFLUNOMIDE [Concomitant]
     Indication: RHEUMATOID ARTHRITIS
     Dates: start: 20050101
  17. TRAMAL [Concomitant]
  18. NORVASC [Concomitant]
     Indication: PRODUCT USED FOR UNKNOWN INDICATION
     Dosage: OPD
  19. TOREM [Concomitant]
     Indication: PRODUCT USED FOR UNKNOWN INDICATION
     Dosage: OPD
  20. CLONIDINE [Concomitant]
     Indication: PRODUCT USED FOR UNKNOWN INDICATION
  21. ACTONEL [Concomitant]
     Dosage: ONCE ON SATURDAY, NEXT TIME PAUSE
  22. DIPIPERON [Concomitant]
     Indication: PRODUCT USED FOR UNKNOWN INDICATION
  23. DOXYCYLIN [Concomitant]
     Indication: PRODUCT USED FOR UNKNOWN INDICATION
     Dates: end: 20091118

REACTIONS (23)
  - AKINESIA [None]
  - ANAEMIA [None]
  - APHASIA [None]
  - C-REACTIVE PROTEIN INCREASED [None]
  - CARDIAC FAILURE [None]
  - CEREBRAL INFARCTION [None]
  - CYSTITIS KLEBSIELLA [None]
  - DYSARTHRIA [None]
  - GENERAL PHYSICAL HEALTH DETERIORATION [None]
  - HAEMATOMA [None]
  - HEMIPARESIS [None]
  - HEMIPLEGIA [None]
  - HYPERTENSIVE HEART DISEASE [None]
  - HYPOKINESIA [None]
  - INCISION SITE INFECTION [None]
  - ISCHAEMIC STROKE [None]
  - LEFT VENTRICULAR DYSFUNCTION [None]
  - LEUKOCYTOSIS [None]
  - PERSONALITY CHANGE [None]
  - PNEUMONIA [None]
  - RESPIRATORY FAILURE [None]
  - STRESS CARDIOMYOPATHY [None]
  - TRACHEOBRONCHITIS [None]
